FAERS Safety Report 19126726 (Version 1)
Quarter: 2021Q2

REPORT INFORMATION
  Report Type: Spontaneous
  Country: US (occurrence: US)
  Receive Date: 20210412
  Receipt Date: 20210412
  Transmission Date: 20210717
  Serious: No
  Sender: FDA-Public Use
  Company Number: US-PERRIGO-21US003387

PATIENT
  Age: 38 Year
  Sex: Female
  Weight: 52.15 kg

DRUGS (4)
  1. METRONIDAZOLE. [Suspect]
     Active Substance: METRONIDAZOLE
     Indication: BACTERIAL VAGINOSIS
     Dosage: 37.5 MG, SINGLE
     Route: 067
     Dates: start: 20210226, end: 20210226
  2. LYRICA [Concomitant]
     Active Substance: PREGABALIN
     Indication: NEURALGIA
     Dosage: UNKNOWN, UNKNOWN
     Route: 048
     Dates: start: 202101
  3. METRONIDAZOLE. [Suspect]
     Active Substance: METRONIDAZOLE
     Dosage: 37.5 MG, QD
     Route: 067
     Dates: start: 20210228, end: 20210303
  4. PEPCID [Concomitant]
     Active Substance: FAMOTIDINE
     Indication: DYSPEPSIA
     Dosage: UNKNOWN, QD
     Route: 048
     Dates: start: 2020

REACTIONS (2)
  - Product dose omission issue [Recovered/Resolved]
  - Vaginal discharge [Not Recovered/Not Resolved]

NARRATIVE: CASE EVENT DATE: 20210227
